FAERS Safety Report 4578607-0 (Version None)
Quarter: 2005Q1

REPORT INFORMATION
  Report Type: 
  Country: None (occurrence: None)
  Receive Date: 20050208
  Receipt Date: 20050208
  Transmission Date: 20050727
  Serious: Yes (Hospitalization)
  Sender: FDA-Public Use
  Company Number: None

PATIENT
  Age: 73 Year
  Sex: Female
  Weight: 54 kg

DRUGS (9)
  1. DAUNORUBICIN HCL [Suspect]
     Indication: ACUTE MYELOID LEUKAEMIA
     Dosage: 45 MG/M2 OTHER
     Dates: start: 20041008, end: 20041026
  2. PLACEBO [Suspect]
     Indication: ACUTE MYELOID LEUKAEMIA
     Dosage: 550 MG/M2 OTHER
     Route: 050
     Dates: start: 20041008, end: 20041026
  3. CYTARABINE [Suspect]
     Indication: ACUTE MYELOID LEUKAEMIA
     Dosage: 100 MG/M2 OTHER
     Dates: start: 20041008, end: 20041026
  4. CIPROFLOXACIN [Concomitant]
  5. SYNTHROID [Concomitant]
  6. CALTRATE PLUS [Concomitant]
  7. GLUCOSAMINE [Concomitant]
  8. ACTONEL [Concomitant]
  9. MULTI-VITAMIN [Concomitant]

REACTIONS (5)
  - ACTIVATED PARTIAL THROMBOPLASTIN TIME PROLONGED [None]
  - BLOOD BILIRUBIN INCREASED [None]
  - COUGH [None]
  - FEBRILE NEUTROPENIA [None]
  - SINUS TACHYCARDIA [None]
